FAERS Safety Report 21101573 (Version 2)
Quarter: 2022Q3

REPORT INFORMATION
  Report Type: Spontaneous
  Country: ES (occurrence: None)
  Receive Date: 20220719
  Receipt Date: 20220723
  Transmission Date: 20221027
  Serious: Yes (Other)
  Sender: FDA-Public Use
  Company Number: 2022A252209

PATIENT
  Age: 52 Year
  Sex: Male

DRUGS (15)
  1. QUETIAPINE [Interacting]
     Active Substance: QUETIAPINE
     Indication: Antipsychotic therapy
     Dosage: 300 MILLIGRAM, TWO TIMES A DAY
     Route: 048
     Dates: start: 20170426
  2. LORMETAZEPAM [Concomitant]
     Active Substance: LORMETAZEPAM
     Indication: Hypnotherapy
     Dosage: 2 MILLIGRAM, ONCE A DAY
     Route: 065
     Dates: start: 20171216
  3. INSULIN ASPART [Concomitant]
     Active Substance: INSULIN ASPART
     Indication: Diabetes mellitus
     Dosage: 10 UI, 3 TIMES A DAY
     Route: 065
     Dates: start: 20200707
  4. CLORAZEPATE DIPOTASSIUM [Concomitant]
     Active Substance: CLORAZEPATE DIPOTASSIUM
     Indication: Anxiolytic therapy
     Dosage: 15 MILLIGRAM EVERY /4.5H
     Route: 065
     Dates: start: 20190221
  5. ETRAVIRINE [Concomitant]
     Active Substance: ETRAVIRINE
     Indication: HIV infection
     Dosage: 200 MILLIGRAM, ONCE A DAY
     Route: 065
     Dates: start: 20140527
  6. ZOLPIDEM [Concomitant]
     Active Substance: ZOLPIDEM TARTRATE
     Indication: Hypnotherapy
     Dosage: 10 MILLIGRAM, ONCE A DAY
     Route: 065
     Dates: start: 20190313
  7. GABAPENTIN [Concomitant]
     Active Substance: GABAPENTIN
     Indication: Analgesic therapy
     Dosage: 600 MILLIGRAM, 3 TIMES A DAY
     Route: 065
     Dates: start: 20211015
  8. INSULIN GLARGINE [Concomitant]
     Active Substance: INSULIN GLARGINE
     Indication: Diabetes mellitus
     Dosage: 60 UI, ONCE A DAY
     Route: 065
     Dates: start: 20190527
  9. DULAGLUTIDE [Concomitant]
     Active Substance: DULAGLUTIDE
     Indication: Diabetes mellitus
     Dosage: 1.5 MILLIGRAM/7 DAYS1.5MG UNKNOWN
     Route: 065
     Dates: start: 20190529
  10. OMEPRAZOLE [Concomitant]
     Active Substance: OMEPRAZOLE
     Indication: Ulcer
     Dosage: 40 MILLIGRAM, ONCE A DAY
     Route: 065
     Dates: start: 20191127
  11. FENOFIBRATE [Concomitant]
     Active Substance: FENOFIBRATE
     Indication: Lipids decreased
     Dosage: 145 MILLIGRAM, ONCE A DAY
     Route: 065
     Dates: start: 20200420
  12. ACETAMINOPHEN [Concomitant]
     Active Substance: ACETAMINOPHEN
     Indication: Analgesic drug level
     Dosage: 1 GRAM, TWO TIMES A DAY
     Route: 065
     Dates: start: 20210721
  13. ROSUVASTATIN [Concomitant]
     Active Substance: ROSUVASTATIN
     Indication: Lipids decreased
     Dosage: 5 MILLIGRAM, ONCE A DAY
     Route: 065
     Dates: start: 20180511
  14. METAMIZOLE [Concomitant]
     Active Substance: METAMIZOLE
     Indication: Analgesic therapy
     Dosage: 575 MILLIGRAM, 3 TIMES A DAY
     Route: 065
     Dates: start: 20210705
  15. LOSARTAN [Concomitant]
     Active Substance: LOSARTAN
     Indication: Hypertension
     Dosage: 100 MILLIGRAM, ONCE A DAY
     Route: 065
     Dates: start: 20181013

REACTIONS (6)
  - Tachycardia [Recovered/Resolved]
  - Insomnia [Recovered/Resolved]
  - Agitation [Recovered/Resolved]
  - Confusional state [Recovered/Resolved]
  - Restlessness [Recovered/Resolved]
  - Drug interaction [Recovered/Resolved]
